FAERS Safety Report 4486929-7 (Version None)
Quarter: 2004Q3

REPORT INFORMATION
  Report Type: 
  Country: None (occurrence: None)
  Receive Date: 20040921
  Receipt Date: 20031009
  Transmission Date: 20050211
  Serious: Yes (Hospitalization)
  Sender: FDA-Public Use
  Company Number: 163-2078503100246

PATIENT
  Age: 84 Year
  Sex: Male
  Weight: 91.2 kg

DRUGS (12)
  1. THALOMID [Suspect]
     Indication: PROSTATE CANCER
     Dosage: 200 MG, QD, ORAL
     Route: 048
     Dates: start: 20030227, end: 20031006
  2. DEXAMETHASONE [Suspect]
     Indication: PROSTATE CANCER
     Dosage: 0.75 MG, BID, ORAL
     Route: 048
     Dates: start: 20030227, end: 20031006
  3. SYNTHROID (LEVOTYHYROXINE SODIUM) [Concomitant]
  4. PROTONIX [Concomitant]
  5. ATENOLOL [Concomitant]
  6. PLAVIX [Concomitant]
  7. ASPIRIN TAB [Concomitant]
  8. COUMADIN [Concomitant]
  9. ZOCOR [Concomitant]
  10. ZOLADEX [Concomitant]
  11. ZOMETA [Concomitant]
  12. SORBITAL [Concomitant]

REACTIONS (3)
  - CANDIDIASIS [None]
  - DISEASE PROGRESSION [None]
  - INFECTION [None]
